FAERS Safety Report 9358023 (Version 8)
Quarter: 2014Q2

REPORT INFORMATION
  Report Type: Spontaneous
  Country: US (occurrence: US)
  Receive Date: 20130620
  Receipt Date: 20140401
  Transmission Date: 20141212
  Serious: Yes (Hospitalization, Other)
  Sender: FDA-Public Use
  Company Number: US-009507513-1306USA006663

PATIENT
  Sex: Female

DRUGS (5)
  1. FOSAMAX [Suspect]
     Indication: OSTEOPENIA
     Dosage: 70 MG, UNK
     Route: 048
     Dates: end: 20110422
  2. ALENDRONATE SODIUM [Suspect]
     Dosage: 70 MG, UNK
     Route: 048
     Dates: start: 2008, end: 2011
  3. CENTRUM (MINERALS (UNSPECIFIED) (+) VITAMINS (UNSPECIFIED)) [Concomitant]
     Dosage: UNK, QD
     Dates: start: 1980
  4. CITRACAL + D [Concomitant]
     Dosage: UNK, BID
     Dates: start: 1980
  5. LEVOXYL [Concomitant]
     Indication: HYPOTHYROIDISM
     Dosage: 77-88 MICROGRAM, QD
     Dates: start: 1985

REACTIONS (27)
  - Femur fracture [Unknown]
  - Intramedullary rod insertion [Unknown]
  - Fracture malunion [Unknown]
  - Removal of internal fixation [Unknown]
  - Osteotomy [Unknown]
  - Open reduction of fracture [Unknown]
  - Removal of internal fixation [Unknown]
  - Fracture nonunion [Unknown]
  - Internal fixation of fracture [Unknown]
  - Device breakage [Unknown]
  - Spinal fusion surgery [Unknown]
  - Spinal laminectomy [Unknown]
  - Anaemia postoperative [Recovered/Resolved]
  - Femur fracture [Unknown]
  - Femur fracture [Unknown]
  - Surgery [Unknown]
  - Low turnover osteopathy [Unknown]
  - Osteoporosis [Unknown]
  - Fatigue [Unknown]
  - Cellulitis [Unknown]
  - Osteomyelitis [Unknown]
  - Cardiac murmur [Unknown]
  - Anaemia [Unknown]
  - Mastication disorder [Unknown]
  - Mass [Unknown]
  - Stomatitis [Unknown]
  - Nausea [Unknown]
